FAERS Safety Report 23657490 (Version 5)
Quarter: 2024Q3

REPORT INFORMATION
  Report Type: Spontaneous
  Country: US (occurrence: US)
  Receive Date: 20240321
  Receipt Date: 20240917
  Transmission Date: 20241017
  Serious: No
  Sender: PFIZER
  Company Number: US-PFIZER INC-PV202400031987

PATIENT
  Age: 75 Year
  Sex: Male

DRUGS (1)
  1. GENOTROPIN [Suspect]
     Active Substance: SOMATROPIN
     Dosage: 0.1 MG 6 DAYS/WEEK

REACTIONS (3)
  - Drug dose omission by device [Unknown]
  - Product communication issue [Unknown]
  - Device use issue [Unknown]
